FAERS Safety Report 23973626 (Version 1)
Quarter: 2024Q2

REPORT INFORMATION
  Report Type: Spontaneous
  Country: AU (occurrence: AU)
  Receive Date: 20240613
  Receipt Date: 20240613
  Transmission Date: 20240716
  Serious: Yes (Hospitalization)
  Sender: FDA-Public Use
  Company Number: AU-MYLANLABS-2023M1131706

PATIENT
  Age: 34 Year
  Sex: Male

DRUGS (5)
  1. CLOZAPINE [Suspect]
     Active Substance: CLOZAPINE
     Indication: Schizophrenia
     Dosage: UNK
     Route: 065
  2. PALIPERIDONE [Interacting]
     Active Substance: PALIPERIDONE
     Indication: Schizophrenia
     Dosage: 3 MG INTERVAL: 1 DAY
     Route: 065
  3. PALIPERIDONE [Interacting]
     Active Substance: PALIPERIDONE
     Dosage: 9 MG INTERVAL: 1 DAY
     Route: 065
  4. VORICONAZOLE [Interacting]
     Active Substance: VORICONAZOLE
     Indication: Fungal infection
     Dosage: 12 MG/KG INTERVAL: 1 DAY
     Route: 048
  5. VORICONAZOLE [Interacting]
     Active Substance: VORICONAZOLE
     Dosage: 8 MG/KG INTERVAL: 1 DAY
     Route: 048

REACTIONS (6)
  - Hyperreflexia [Recovered/Resolved]
  - Drug interaction [Recovered/Resolved]
  - Febrile neutropenia [Recovering/Resolving]
  - Hypertonia [Recovered/Resolved]
  - Extrapyramidal disorder [Recovered/Resolved]
  - Liver function test abnormal [Recovered/Resolved]
